FAERS Safety Report 24763695 (Version 4)
Quarter: 2025Q1

REPORT INFORMATION
  Report Type: Report from Study
  Country: MX (occurrence: MX)
  Receive Date: 20241223
  Receipt Date: 20250306
  Transmission Date: 20250408
  Serious: Yes (Other)
  Sender: UCB
  Company Number: MX-UCBSA-2024066308

PATIENT
  Sex: Female
  Weight: 63 kg

DRUGS (41)
  1. CERTOLIZUMAB PEGOL [Suspect]
     Active Substance: CERTOLIZUMAB PEGOL
     Indication: Rheumatoid arthritis
     Dosage: 400 MILLIGRAM, EV 4 WEEKS
     Dates: start: 20240127
  2. CERTOLIZUMAB PEGOL [Suspect]
     Active Substance: CERTOLIZUMAB PEGOL
     Dosage: 200 MILLIGRAM, EV 2 WEEKS(QOW)
     Dates: end: 20240808
  3. CERTOLIZUMAB PEGOL [Suspect]
     Active Substance: CERTOLIZUMAB PEGOL
  4. PREDNISONE [Concomitant]
     Active Substance: PREDNISONE
     Indication: Rheumatoid arthritis
     Route: 048
     Dates: start: 202302, end: 202408
  5. PREDNISONE [Concomitant]
     Active Substance: PREDNISONE
  6. AZULFIDINE [Concomitant]
     Active Substance: SULFASALAZINE
     Indication: Rheumatoid arthritis
     Dates: start: 202302, end: 202408
  7. AZULFIDINE [Concomitant]
     Active Substance: SULFASALAZINE
     Dates: start: 20240915, end: 2024
  8. TRAMADOL [Concomitant]
     Active Substance: TRAMADOL
     Indication: Product used for unknown indication
  9. PREGABALIN [Concomitant]
     Active Substance: PREGABALIN
     Indication: Confusional state
  10. PREGABALIN [Concomitant]
     Active Substance: PREGABALIN
     Indication: Irritability
  11. PREGABALIN [Concomitant]
     Active Substance: PREGABALIN
     Indication: Dizziness
  12. PREGABALIN [Concomitant]
     Active Substance: PREGABALIN
     Indication: Somnolence
  13. PREGABALIN [Concomitant]
     Active Substance: PREGABALIN
     Indication: Headache
  14. PREGABALIN [Concomitant]
     Active Substance: PREGABALIN
     Indication: Amnesia
  15. PREGABALIN [Concomitant]
     Active Substance: PREGABALIN
     Indication: Memory impairment
  16. PREGABALIN [Concomitant]
     Active Substance: PREGABALIN
     Indication: Hallucination
  17. PREGABALIN [Concomitant]
     Active Substance: PREGABALIN
     Indication: Disturbance in attention
  18. PREGABALIN [Concomitant]
     Active Substance: PREGABALIN
     Indication: Suicidal ideation
  19. PREGABALIN [Concomitant]
     Active Substance: PREGABALIN
     Indication: Lethargy
  20. PREGABALIN [Concomitant]
     Active Substance: PREGABALIN
     Indication: Euphoric mood
  21. PREGABALIN [Concomitant]
     Active Substance: PREGABALIN
     Indication: Hypoaesthesia
  22. TAFITRAM [Concomitant]
     Indication: Dizziness
  23. TAFITRAM [Concomitant]
     Indication: Somnolence
  24. TAFITRAM [Concomitant]
     Indication: Headache
  25. TAFITRAM [Concomitant]
     Indication: Tremor
  26. TAFITRAM [Concomitant]
     Indication: Confusional state
  27. TAFITRAM [Concomitant]
     Indication: Anxiety
  28. TAFITRAM [Concomitant]
     Indication: Anger
  29. TAFITRAM [Concomitant]
     Indication: Depression
  30. TAFITRAM [Concomitant]
     Indication: Nausea
  31. CORTISONE [Concomitant]
     Active Substance: CORTISONE
     Indication: Product used for unknown indication
  32. BETAMETHASONE DIPROPIONATE [Concomitant]
     Active Substance: BETAMETHASONE DIPROPIONATE
     Indication: Product used for unknown indication
  33. PLAQUENIL [Concomitant]
     Active Substance: HYDROXYCHLOROQUINE SULFATE
     Indication: Product used for unknown indication
  34. CLONAZEPAM [Concomitant]
     Active Substance: CLONAZEPAM
     Indication: Product used for unknown indication
  35. KI CAB [Concomitant]
     Indication: Product used for unknown indication
     Route: 048
  36. ACETAMINOPHEN [Concomitant]
     Active Substance: ACETAMINOPHEN
     Indication: Product used for unknown indication
  37. DOSCOXEL [Concomitant]
     Indication: Pain
     Route: 048
  38. ARLUY [Concomitant]
     Indication: Product used for unknown indication
     Route: 048
  39. DYNASTAT [Concomitant]
     Active Substance: PARECOXIB SODIUM
     Indication: Product used for unknown indication
     Dosage: 40 MILLIGRAM, 2X/DAY (BID)
     Route: 030
  40. VALACYCLOVIR [Concomitant]
     Active Substance: VALACYCLOVIR HYDROCHLORIDE
     Indication: Product used for unknown indication
  41. ACYCLOVIR [Concomitant]
     Active Substance: ACYCLOVIR
     Indication: Skin lesion

REACTIONS (7)
  - Hernia repair [Unknown]
  - Hernia [Unknown]
  - Hallucination [Unknown]
  - Rheumatoid arthritis [Unknown]
  - Herpes zoster [Unknown]
  - Axillary pain [Recovered/Resolved]
  - Dermatitis allergic [Unknown]

NARRATIVE: CASE EVENT DATE: 20240101
